FAERS Safety Report 17307874 (Version 1)
Quarter: 2020Q1

REPORT INFORMATION
  Report Type: Spontaneous
  Country: US (occurrence: US)
  Receive Date: 20200122
  Receipt Date: 20200122
  Transmission Date: 20200409
  Serious: No
  Sender: FDA-Public Use
  Company Number: None

PATIENT
  Sex: Female
  Weight: 63.68 kg

DRUGS (6)
  1. SIMVASTATIN 10MG [Concomitant]
     Active Substance: SIMVASTATIN
  2. MULTIVITAMIN [Concomitant]
     Active Substance: VITAMINS
  3. EXEMESTANE 25MG [Concomitant]
     Active Substance: EXEMESTANE
  4. IBRANCE [Suspect]
     Active Substance: PALBOCICLIB
     Indication: BREAST CANCER FEMALE
     Route: 048
     Dates: start: 20180123, end: 20200122
  5. PIQRAY [Concomitant]
     Active Substance: ALPELISIB
  6. VIACTIV [Concomitant]

REACTIONS (1)
  - Disease progression [None]
